APPROVED DRUG PRODUCT: PENICILLAMINE
Active Ingredient: PENICILLAMINE
Strength: 250MG
Dosage Form/Route: TABLET;ORAL
Application: A211497 | Product #001
Applicant: TEVA PHARMACEUTICALS USA INC
Approved: Feb 13, 2020 | RLD: No | RS: No | Type: DISCN